FAERS Safety Report 9602009 (Version 1)
Quarter: 2013Q4

REPORT INFORMATION
  Report Type: Spontaneous
  Country: ES (occurrence: ES)
  Receive Date: 20131007
  Receipt Date: 20131007
  Transmission Date: 20140711
  Serious: Yes (Other)
  Sender: FDA-Public Use
  Company Number: ES-MPIJNJ-2013JNJ000457

PATIENT
  Sex: 0

DRUGS (9)
  1. VELCADE [Suspect]
     Indication: PLASMA CELL MYELOMA
     Dosage: 1.3 MG/M2, UNK
     Route: 065
  2. VELCADE [Suspect]
     Dosage: 1 MG/M2, UNK
     Route: 065
  3. VELCADE [Suspect]
     Dosage: 0.7 MG/M2, UNK
     Route: 065
  4. VELCADE [Suspect]
     Dosage: UNK
     Route: 065
  5. LENALIDOMIDE [Concomitant]
     Indication: PLASMA CELL MYELOMA
     Dosage: 25 MG, UNK
     Dates: start: 200902, end: 201006
  6. DEXAMETHASONE [Concomitant]
     Indication: PLASMA CELL MYELOMA
     Dosage: 40 MG, UNK
     Dates: start: 200902
  7. CAELYX [Concomitant]
     Indication: PLASMA CELL MYELOMA
     Dosage: UNK
  8. EPOETIN [Concomitant]
  9. GRANULOCYTE COLONY-STIMULATING FACTOR NOS [Concomitant]

REACTIONS (6)
  - Plasma cell myeloma recurrent [Unknown]
  - Neurotoxicity [Recovered/Resolved]
  - Humerus fracture [Unknown]
  - Back pain [Unknown]
  - Anaemia [Unknown]
  - Neutropenia [Unknown]
